FAERS Safety Report 13702852 (Version 1)
Quarter: 2017Q2

REPORT INFORMATION
  Report Type: Spontaneous
  Country: US (occurrence: US)
  Receive Date: 20170629
  Receipt Date: 20170629
  Transmission Date: 20170830
  Serious: Yes (Hospitalization)
  Sender: FDA-Public Use
  Company Number: US-PROCTER+GAMBLE-GS17071330

PATIENT
  Age: 15 Year
  Sex: Female

DRUGS (3)
  1. ASPIRIN. [Suspect]
     Active Substance: ASPIRIN
     Indication: SUICIDE ATTEMPT
     Dosage: 25 TABLETS OF ASPIRIN, 325 MG
     Route: 048
  2. P+GUNKNONPGBSSNPGZBSS# (BISMUTH SUBSALICYLATE) [Suspect]
     Active Substance: BISMUTH SUBSALICYLATE
     Indication: SUICIDE ATTEMPT
     Dosage: FEW
     Route: 048
  3. IBUPROFEN. [Suspect]
     Active Substance: IBUPROFEN
     Indication: SUICIDE ATTEMPT
     Dosage: 2000 MG, 1 ONLY
     Route: 048

REACTIONS (13)
  - Tachypnoea [Recovering/Resolving]
  - Analgesic drug level increased [Recovered/Resolved]
  - Bezoar [Recovered/Resolved]
  - Intentional overdose [Unknown]
  - Toxicity to various agents [Recovering/Resolving]
  - Suicide attempt [Unknown]
  - Abdominal pain [Recovering/Resolving]
  - Nausea [Recovering/Resolving]
  - Heart rate increased [Recovering/Resolving]
  - Drug screen positive [Unknown]
  - Tinnitus [Recovering/Resolving]
  - Abdominal tenderness [Recovering/Resolving]
  - Labelled drug-drug interaction medication error [Unknown]
